FAERS Safety Report 9155452 (Version 1)
Quarter: 2013Q1

REPORT INFORMATION
  Report Type: Spontaneous
  Country: US (occurrence: US)
  Receive Date: 20130311
  Receipt Date: 20130311
  Transmission Date: 20140127
  Serious: No
  Sender: FDA-Public Use
  Company Number: US-ENDO PHARMACEUTICALS INC.-OPCR20120601

PATIENT
  Sex: Male
  Weight: 120.31 kg

DRUGS (3)
  1. OPANA ER 30MG [Suspect]
     Indication: INTERVERTEBRAL DISC DEGENERATION
     Dosage: 30 MG
     Route: 048
     Dates: start: 201203, end: 20120425
  2. OPANA ER 30MG [Suspect]
     Indication: EXOSTOSIS
  3. OPANA ER 30MG [Suspect]
     Indication: BACK INJURY

REACTIONS (1)
  - Pruritus generalised [Unknown]
